FAERS Safety Report 24374722 (Version 3)
Quarter: 2025Q1

REPORT INFORMATION
  Report Type: Spontaneous
  Country: US (occurrence: US)
  Receive Date: 20240927
  Receipt Date: 20250102
  Transmission Date: 20250408
  Serious: No
  Sender: SANOFI AVENTIS
  Company Number: US-SA-2024SA276080

PATIENT
  Age: 9 Year
  Sex: Male

DRUGS (17)
  1. DUPIXENT [Suspect]
     Active Substance: DUPILUMAB
     Indication: Asthma
     Dosage: 200 MG, QOW
     Route: 058
     Dates: start: 20240725, end: 2024
  2. ALBUTEROL [Concomitant]
     Active Substance: ALBUTEROL
  3. ATROVENT HFA [Concomitant]
     Active Substance: IPRATROPIUM BROMIDE
  4. AZITHROMYCIN [Concomitant]
     Active Substance: AZITHROMYCIN
  5. CETIRIZINE [Concomitant]
     Active Substance: CETIRIZINE HYDROCHLORIDE
  6. DIETARY SUPPLEMENT [Concomitant]
     Active Substance: DIETARY SUPPLEMENT
  7. FLUTICASONE [Concomitant]
     Active Substance: FLUTICASONE
  8. MONTELUKAST [Concomitant]
     Active Substance: MONTELUKAST
  9. PREDNISOLONE [Concomitant]
     Active Substance: PREDNISOLONE
  10. PROAIR HFA [Concomitant]
     Active Substance: ALBUTEROL SULFATE
  11. REBIF [Concomitant]
     Active Substance: INTERFERON BETA-1A
  12. SPIRIVA [Concomitant]
     Active Substance: TIOTROPIUM BROMIDE MONOHYDRATE
  13. SYMBICORT [Concomitant]
     Active Substance: BUDESONIDE\FORMOTEROL FUMARATE DIHYDRATE
  14. VENTOLIN HFA [Concomitant]
     Active Substance: ALBUTEROL SULFATE
  15. AZITHROMYCIN [Concomitant]
     Active Substance: AZITHROMYCIN
  16. ATROVENT [Concomitant]
     Active Substance: IPRATROPIUM BROMIDE
  17. ALBUTEROL [Concomitant]
     Active Substance: ALBUTEROL

REACTIONS (3)
  - Asthma [Unknown]
  - Impaired quality of life [Unknown]
  - Drug ineffective [Unknown]

NARRATIVE: CASE EVENT DATE: 20240101
